FAERS Safety Report 23219000 (Version 1)
Quarter: 2023Q4

REPORT INFORMATION
  Report Type: Spontaneous
  Country: US (occurrence: US)
  Receive Date: 20231122
  Receipt Date: 20231122
  Transmission Date: 20240110
  Serious: Yes (Hospitalization)
  Sender: FDA-Public Use
  Company Number: US-AMGEN-USASP2023205258

PATIENT
  Age: 68 Year
  Sex: Male

DRUGS (3)
  1. CINACALCET HYDROCHLORIDE [Suspect]
     Active Substance: CINACALCET HYDROCHLORIDE
     Indication: Parathyroid tumour benign
     Dosage: 90 MILLIGRAM, QD
     Route: 065
  2. CALCITONIN [Concomitant]
     Active Substance: CALCITONIN
     Dosage: UNK
     Route: 065
  3. PAMIDRONATE [Concomitant]
     Active Substance: PAMIDRONATE DISODIUM
     Dosage: 160 MILLIGRAM
     Route: 042

REACTIONS (3)
  - Blood phosphorus decreased [Unknown]
  - Vitamin D decreased [Unknown]
  - Blood creatine phosphokinase increased [Unknown]
